FAERS Safety Report 5284467-5 (Version None)
Quarter: 2007Q1

REPORT INFORMATION
  Report Type: 
  Country: None (occurrence: None)
  Receive Date: 20070328
  Receipt Date: 20070320
  Transmission Date: 20070707
  Serious: Yes (Death, Hospitalization)
  Sender: FDA-Public Use
  Company Number: 2007000293

PATIENT
  Age: 57 Year
  Sex: Female

DRUGS (8)
  1. ERLOTINIB (TABLET) [Suspect]
     Indication: NON-SMALL CELL LUNG CANCER
     Dosage: UNK (UNK), ORAL
     Route: 048
     Dates: start: 20061005, end: 20061215
  2. SALBUTAMOL (SALBUTAMOL) [Concomitant]
  3. SALMETEROL (SALMETEROL) [Concomitant]
  4. ATROVENT [Concomitant]
  5. BENDROFLUAZIDE (BENDROFLUMETHIAZIDE) [Concomitant]
  6. PREDNISOLONE [Concomitant]
  7. MAXOLON [Concomitant]
  8. TEMAZEPAM [Concomitant]

REACTIONS (15)
  - BLOOD GASES ABNORMAL [None]
  - CHRONIC OBSTRUCTIVE PULMONARY DISEASE [None]
  - CONVULSION [None]
  - DYSPNOEA [None]
  - HYPONATRAEMIA [None]
  - INAPPROPRIATE ANTIDIURETIC HORMONE SECRETION [None]
  - INFECTION [None]
  - LOWER RESPIRATORY TRACT INFECTION [None]
  - LUNG NEOPLASM MALIGNANT [None]
  - METABOLIC ACIDOSIS [None]
  - OXYGEN SATURATION DECREASED [None]
  - PNEUMONIA [None]
  - RESPIRATORY RATE INCREASED [None]
  - SINUS TACHYCARDIA [None]
  - SOMNOLENCE [None]
